FAERS Safety Report 11916277 (Version 5)
Quarter: 2016Q1

REPORT INFORMATION
  Report Type: Report from Study
  Country: US (occurrence: US)
  Receive Date: 20160114
  Receipt Date: 20160330
  Transmission Date: 20160526
  Serious: Yes (Hospitalization, Other)
  Sender: FDA-Public Use
  Company Number: US-BAYER-2016-006503

PATIENT
  Age: 76 Year
  Sex: Male
  Weight: 72.56 kg

DRUGS (5)
  1. ADEMPAS [Suspect]
     Active Substance: RIOCIGUAT
     Indication: PULMONARY ARTERIAL HYPERTENSION
     Dosage: UNK
     Dates: start: 20151022
  2. ADEMPAS [Suspect]
     Active Substance: RIOCIGUAT
     Indication: PULMONARY ARTERIAL HYPERTENSION
     Dosage: 1 MG, TID
     Route: 048
  3. ADEMPAS [Suspect]
     Active Substance: RIOCIGUAT
     Indication: PULMONARY ARTERIAL HYPERTENSION
     Dosage: 1 MG, TID
     Route: 048
  4. ADEMPAS [Suspect]
     Active Substance: RIOCIGUAT
     Indication: PULMONARY ARTERIAL HYPERTENSION
     Dosage: 1 MG, TID
     Route: 048
  5. WARFARIN [Concomitant]
     Active Substance: WARFARIN

REACTIONS (16)
  - Peripheral swelling [Unknown]
  - Ileus [None]
  - Pulmonary arterial pressure increased [Unknown]
  - Functional gastrointestinal disorder [None]
  - Pain [None]
  - Oxygen consumption increased [Unknown]
  - Renal disorder [Unknown]
  - Constipation [None]
  - Bladder catheterisation [Unknown]
  - Gastrointestinal disorder [Unknown]
  - Bladder disorder [Unknown]
  - Labile blood pressure [Unknown]
  - Pain [None]
  - Blood potassium decreased [None]
  - Fall [Unknown]
  - Urinary retention [Unknown]

NARRATIVE: CASE EVENT DATE: 20150311
